FAERS Safety Report 17053348 (Version 6)
Quarter: 2020Q4

REPORT INFORMATION
  Report Type: Spontaneous
  Country: US (occurrence: US)
  Receive Date: 20191120
  Receipt Date: 20201224
  Transmission Date: 20210113
  Serious: Yes (Hospitalization)
  Sender: FDA-Public Use
  Company Number: US-JNJFOC-20191123813

PATIENT
  Age: 26 Year
  Sex: Female
  Weight: 133.02 kg

DRUGS (9)
  1. ZOFRAN [Concomitant]
     Active Substance: ONDANSETRON HYDROCHLORIDE
     Indication: NAUSEA
     Route: 048
     Dates: start: 20200302
  2. CEFAZOLIN [Concomitant]
     Active Substance: CEFAZOLIN
     Indication: PRODUCT USED FOR UNKNOWN INDICATION
     Dosage: ONCE
     Route: 042
  3. STELARA [Suspect]
     Active Substance: USTEKINUMAB
     Indication: CROHN^S DISEASE
     Dosage: ONCE IN 56 DAYS
     Route: 058
     Dates: start: 20180420
  4. REGLAN [Concomitant]
     Active Substance: METOCLOPRAMIDE HYDROCHLORIDE
     Indication: PRODUCT USED FOR UNKNOWN INDICATION
     Dosage: ONCE
     Route: 042
  5. DIFLUCAN 150 [Concomitant]
     Indication: FUNGAL INFECTION
     Route: 048
     Dates: start: 20200302
  6. BICITRA [CITRIC ACID;SODIUM CITRATE] [Concomitant]
     Indication: PRODUCT USED FOR UNKNOWN INDICATION
     Dosage: ONCE
     Route: 048
  7. PRENATAL                           /00231801/ [Concomitant]
     Active Substance: VITAMINS
     Indication: PRODUCT USED FOR UNKNOWN INDICATION
     Route: 048
  8. PREDNISONE. [Concomitant]
     Active Substance: PREDNISONE
     Indication: CROHN^S DISEASE
     Route: 048
     Dates: start: 20190610
  9. ZITHROMAX [Concomitant]
     Active Substance: AZITHROMYCIN DIHYDRATE
     Indication: PRODUCT USED FOR UNKNOWN INDICATION
     Route: 048
     Dates: start: 20200203

REACTIONS (3)
  - Crohn^s disease [Unknown]
  - Treatment noncompliance [Unknown]
  - Exposure during pregnancy [Recovered/Resolved]

NARRATIVE: CASE EVENT DATE: 201906
